FAERS Safety Report 24921477 (Version 1)
Quarter: 2025Q1

REPORT INFORMATION
  Report Type: Spontaneous
  Country: US (occurrence: US)
  Receive Date: 20250204
  Receipt Date: 20250204
  Transmission Date: 20250409
  Serious: Yes (Other)
  Sender: AMGEN
  Company Number: US-AMGEN-USASP2025017343

PATIENT
  Age: 28 Year
  Sex: Female

DRUGS (5)
  1. KANJINTI [Suspect]
     Active Substance: TRASTUZUMAB-ANNS
     Indication: Breast cancer
     Route: 065
     Dates: end: 202411
  2. TRASTUZUMAB [Suspect]
     Active Substance: TRASTUZUMAB
     Indication: Breast cancer
     Route: 065
  3. PERJETA [Concomitant]
     Active Substance: PERTUZUMAB
  4. TAXOTERE [Concomitant]
     Active Substance: DOCETAXEL
  5. TAXOTERE [Concomitant]
     Active Substance: DOCETAXEL

REACTIONS (3)
  - Breast cancer recurrent [Unknown]
  - Off label use [Not Recovered/Not Resolved]
  - Rash pustular [Unknown]
